FAERS Safety Report 23880721 (Version 1)
Quarter: 2024Q2

REPORT INFORMATION
  Report Type: Spontaneous
  Country: US (occurrence: None)
  Receive Date: 20240521
  Receipt Date: 20240521
  Transmission Date: 20240716
  Serious: Yes (Hospitalization)
  Sender: FDA-Public Use
  Company Number: None

PATIENT
  Age: 54 Year
  Sex: Male
  Weight: 107.5 kg

DRUGS (1)
  1. LOSARTAN [Suspect]
     Active Substance: LOSARTAN
     Dosage: FREQUENCY : DAILY;?
     Route: 048
     Dates: start: 20240124, end: 20240125

REACTIONS (2)
  - Angioedema [None]
  - Hypersensitivity [None]

NARRATIVE: CASE EVENT DATE: 20240125
